FAERS Safety Report 6731027-2 (Version None)
Quarter: 2010Q2

REPORT INFORMATION
  Report Type: 
  Country: None (occurrence: None)
  Receive Date: 20100518
  Receipt Date: 20100427
  Transmission Date: 20101027
  Serious: Yes (Other)
  Sender: FDA-Public Use
  Company Number: US-ELI_LILLY_AND_COMPANY-US201005000323

PATIENT
  Age: 51 Year
  Sex: Female

DRUGS (3)
  1. CYMBALTA [Suspect]
     Indication: DEPRESSION
     Dosage: 30 MG, DAILY (1/D)
     Dates: start: 20100424
  2. CLONAZEPAM [Concomitant]
     Dosage: 1 MG, UNKNOWN
     Route: 065
  3. ADDERALL 30 [Concomitant]
     Dosage: 20 MG, EACH MORNING
     Route: 065

REACTIONS (5)
  - MOBILITY DECREASED [None]
  - OEDEMA PERIPHERAL [None]
  - PAIN [None]
  - PARAESTHESIA [None]
  - SKIN DISCOLOURATION [None]
